FAERS Safety Report 23750804 (Version 2)
Quarter: 2024Q2

REPORT INFORMATION
  Report Type: Report from Study
  Country: GB (occurrence: GB)
  Receive Date: 20240417
  Receipt Date: 20240430
  Transmission Date: 20240715
  Serious: Yes (Other)
  Sender: FDA-Public Use
  Company Number: GB-BAXTER-2024BAX016469

PATIENT
  Age: 58 Year
  Sex: Male

DRUGS (18)
  1. CERNEVIT [Suspect]
     Active Substance: VITAMINS
     Indication: Parenteral nutrition
     Dosage: (ROUTE AND FORM: UNKNOWN) AT AN UNSPECIFIED DOSE AND FREQUENCY
     Route: 065
     Dates: start: 20240405, end: 20240405
  2. WATER FOR INJECTION [Suspect]
     Active Substance: WATER
     Indication: Parenteral nutrition
     Dosage: (ROUTE AND FORM: UNKNOWN) AT AN UNSPECIFIED DOSE AND FREQUENCY
     Route: 065
     Dates: start: 20240405, end: 20240405
  3. DEXTROSE [Suspect]
     Active Substance: DEXTROSE\DEXTROSE MONOHYDRATE
     Indication: Parenteral nutrition
     Dosage: (GLUCOSE 50% BP) (ROUTE AND FORM: UNKNOWN) AT AN UNSPECIFIED DOSE AND FREQUENCY
     Route: 065
     Dates: start: 20240405, end: 20240405
  4. MAGNESIUM SULFATE [Suspect]
     Active Substance: MAGNESIUM SULFATE\MAGNESIUM SULFATE HEPTAHYDRATE
     Indication: Parenteral nutrition
     Dosage: (BAG) (ROUTE AND FORM: UNKNOWN) AT AN UNSPECIFIED DOSE AND FREQUENCY
     Route: 065
     Dates: start: 20240405, end: 20240405
  5. SODIUM CHLORIDE [Suspect]
     Active Substance: SODIUM CHLORIDE
     Indication: Parenteral nutrition
     Dosage: (ROUTE AND FORM: UNKNOWN) AT AN UNSPECIFIED DOSE AND FREQUENCY
     Route: 065
     Dates: start: 20240405, end: 20240405
  6. SODIUM GLYCEROPHOSPHATE [Suspect]
     Active Substance: SODIUM GLYCEROPHOSPHATE
     Indication: Parenteral nutrition
     Dosage: (ROUTE AND FORM: UNKNOWN) AT AN UNSPECIFIED DOSE AND FREQUENCY
     Route: 065
     Dates: start: 20240405, end: 20240405
  7. WATER FOR INJECTION [Suspect]
     Active Substance: WATER
     Indication: Parenteral nutrition
     Dosage: (WATER FOR TPN FORMULATIONS) AT AN UNSPECIFIED DOSE AND FREQUENCY
     Route: 065
     Dates: start: 20240405, end: 20240405
  8. AMINO ACIDS, SOURCE UNSPECIFIED [Suspect]
     Active Substance: AMINO ACIDS, SOURCE UNSPECIFIED
     Indication: Parenteral nutrition
     Dosage: (AMINOVEN 25) (ROUTE AND FORM: UNKNOWN) AT AN UNSPECIFIED DOSE AND FREQUENCY
     Route: 065
     Dates: start: 20240405, end: 20240405
  9. ELECTROLYTES NOS\MINERALS [Suspect]
     Active Substance: ELECTROLYTES NOS\MINERALS
     Indication: Parenteral nutrition
     Dosage: (ROUTE AND FORM: UNKNOWN) AT AN UNSPECIFIED DOSE AND FREQUENCY
     Route: 065
     Dates: start: 20240405, end: 20240405
  10. UNSPECIFIED INGREDIENT [Suspect]
     Active Substance: UNSPECIFIED INGREDIENT
     Route: 065
  11. PANTOPRAZOLE [Concomitant]
     Active Substance: PANTOPRAZOLE
     Indication: Product used for unknown indication
     Dosage: 40 MG AT AN UNSPECIFIED FREQUENCY
     Route: 065
  12. TAUROLIDINE [Concomitant]
     Active Substance: TAUROLIDINE
     Indication: Product used for unknown indication
     Dosage: 2 ML AT AN UNSPECIFIED FREQUENCY
     Route: 065
  13. SODIUM CHLORIDE [Concomitant]
     Active Substance: SODIUM CHLORIDE
     Indication: Flushing
     Route: 065
  14. TRAMADOL [Concomitant]
     Active Substance: TRAMADOL\TRAMADOL HYDROCHLORIDE
     Indication: Product used for unknown indication
     Dosage: UNK
     Route: 065
  15. GABAPENTIN [Concomitant]
     Active Substance: GABAPENTIN
     Indication: Product used for unknown indication
     Route: 065
  16. ONDANSETRON [Concomitant]
     Active Substance: ONDANSETRON
     Indication: Product used for unknown indication
     Route: 065
  17. ENOXAPARIN SODIUM [Concomitant]
     Active Substance: ENOXAPARIN SODIUM
     Indication: Anticoagulant therapy
     Dosage: (CLEXANE 120 INJECTION BLOOD THINNER)
     Route: 065
  18. FAMOTIDINE [Concomitant]
     Active Substance: FAMOTIDINE
     Indication: Product used for unknown indication
     Route: 065

REACTIONS (4)
  - Drug hypersensitivity [Recovering/Resolving]
  - Rash [Recovering/Resolving]
  - Chest pain [Recovered/Resolved]
  - Angina pectoris [Not Recovered/Not Resolved]

NARRATIVE: CASE EVENT DATE: 20240405
